FAERS Safety Report 11222611 (Version 1)
Quarter: 2015Q2

REPORT INFORMATION
  Report Type: Report from Study
  Country: FR (occurrence: FR)
  Receive Date: 20150626
  Receipt Date: 20150626
  Transmission Date: 20150821
  Serious: Yes (Hospitalization)
  Sender: FDA-Public Use
  Company Number: FR-GLAXOSMITHKLINE-FR2015GSK089652

PATIENT
  Age: 7 Decade
  Sex: Male
  Weight: 100 kg

DRUGS (11)
  1. TEMERIT [Concomitant]
     Active Substance: NEBIVOLOL
  2. OMEGA-3-ACID ETHYL ESTERS. [Suspect]
     Active Substance: OMEGA-3-ACID ETHYL ESTERS
     Indication: ISCHAEMIC HEART DISEASE PROPHYLAXIS
     Dosage: UNK
     Dates: start: 20070615, end: 20090921
  3. ADANCOR [Concomitant]
     Active Substance: NICORANDIL
  4. PERMIXON [Concomitant]
     Active Substance: SAW PALMETTO
     Dosage: 1 DF, UNK
  5. CRESTOR [Concomitant]
     Active Substance: ROSUVASTATIN CALCIUM
     Dosage: 1 DF, QD
  6. KARDEGIC [Concomitant]
     Active Substance: ASPIRIN LYSINE
     Dosage: UNK, QD
  7. MOPRAL [Concomitant]
     Active Substance: OMEPRAZOLE SODIUM
     Dosage: 1 DF, QD
  8. NISIS [Concomitant]
     Active Substance: VALSARTAN
  9. VASTEN [Concomitant]
     Active Substance: PRAVASTATIN SODIUM
  10. PLAVIX [Concomitant]
     Active Substance: CLOPIDOGREL BISULFATE
     Dosage: UNK, QD
  11. ATACAND [Concomitant]
     Active Substance: CANDESARTAN CILEXETIL
     Dosage: 4 MG, QD

REACTIONS (1)
  - Asthenia [Unknown]

NARRATIVE: CASE EVENT DATE: 20110418
